FAERS Safety Report 17282440 (Version 3)
Quarter: 2020Q1

REPORT INFORMATION
  Report Type: Report from Study
  Country: US (occurrence: US)
  Receive Date: 20200117
  Receipt Date: 20200319
  Transmission Date: 20200409
  Serious: Yes (Hospitalization, Disabling, Other)
  Sender: FDA-Public Use
  Company Number: US-ROCHE-2525152

PATIENT
  Age: 66 Year
  Sex: Female
  Weight: 43.4 kg

DRUGS (48)
  1. TENECTEPLASE [Suspect]
     Active Substance: TENECTEPLASE
     Indication: THROMBOLYSIS
     Dosage: TX DATE PRIOR TO AE 30/NOV/2019
     Route: 042
  2. LEVETIRACETAM. [Concomitant]
     Active Substance: LEVETIRACETAM
     Indication: GASTROOESOPHAGEAL REFLUX DISEASE
     Route: 042
     Dates: start: 20191130, end: 20191130
  3. MIDAZOLAM HYDROCHLORIDE. [Concomitant]
     Active Substance: MIDAZOLAM HYDROCHLORIDE
     Indication: THROMBECTOMY
     Route: 042
     Dates: start: 20191130, end: 20191130
  4. SUBLIMAZE [FENTANYL] [Concomitant]
  5. SODIUM CHLORIDE 0.9% [Concomitant]
     Active Substance: SODIUM CHLORIDE
     Dosage: 125.00 OTHER
     Route: 042
     Dates: start: 20191130, end: 20191130
  6. LEVETIRACETAM. [Concomitant]
     Active Substance: LEVETIRACETAM
     Indication: GASTROOESOPHAGEAL REFLUX DISEASE
     Route: 048
     Dates: start: 20191201, end: 20191202
  7. MELATONIN [Concomitant]
     Active Substance: MELATONIN
     Route: 060
     Dates: start: 20191209, end: 20191210
  8. ZOFRAN [Concomitant]
     Active Substance: ONDANSETRON HYDROCHLORIDE
     Route: 048
     Dates: start: 20191115
  9. CHLORHEXIDINE GLUCONATE. [Concomitant]
     Active Substance: CHLORHEXIDINE GLUCONATE
  10. ENOXAPARIN [Concomitant]
     Active Substance: ENOXAPARIN
  11. BISACODYL. [Concomitant]
     Active Substance: BISACODYL
  12. METOCLOPRAMIDE. [Concomitant]
     Active Substance: METOCLOPRAMIDE
  13. OMEPRAZOLE. [Concomitant]
     Active Substance: OMEPRAZOLE
  14. SODIUM CHLORIDE. [Concomitant]
     Active Substance: SODIUM CHLORIDE
     Route: 042
     Dates: start: 20191130, end: 20191130
  15. SODIUM CHLORIDE. [Concomitant]
     Active Substance: SODIUM CHLORIDE
     Route: 042
     Dates: start: 20191201, end: 20191218
  16. FAMOTIDINE. [Concomitant]
     Active Substance: FAMOTIDINE
     Route: 042
     Dates: start: 20191130, end: 20191130
  17. K PHOS NEUTRAL [Concomitant]
     Active Substance: POTASSIUM PHOSPHATE, MONOBASIC\SODIUM PHOSPHATE, DIBASIC, ANHYDROUS\SODIUM PHOSPHATE, MONOBASIC, MONOHYDRATE
     Indication: NUTRITIONAL SUPPLEMENTATION
     Dosage: 1.00 OTHER
     Route: 048
     Dates: start: 20191202, end: 20191202
  18. POTASSIUM CHLORIDE. [Concomitant]
     Active Substance: POTASSIUM CHLORIDE
     Indication: NUTRITIONAL SUPPLEMENTATION
     Dosage: 40.00 OTHER
     Route: 048
     Dates: start: 20191204, end: 20191204
  19. PEPCID [Concomitant]
     Active Substance: FAMOTIDINE
     Route: 048
     Dates: start: 20191208, end: 20191210
  20. PRILOSEC [Concomitant]
     Active Substance: OMEPRAZOLE MAGNESIUM
     Indication: NEOPLASM MALIGNANT
     Route: 048
     Dates: start: 20190214
  21. ISOPTIN [Concomitant]
     Active Substance: VERAPAMIL HYDROCHLORIDE
  22. DULCOLAX (BISACODYL) [Concomitant]
     Active Substance: BISACODYL
  23. VERAPAMIL [Concomitant]
     Active Substance: VERAPAMIL HYDROCHLORIDE
     Indication: THROMBECTOMY
     Route: 011
     Dates: start: 20191130, end: 20191130
  24. LOVENOX [Concomitant]
     Active Substance: ENOXAPARIN SODIUM
     Route: 058
     Dates: start: 20191219
  25. REGLAN [Concomitant]
     Active Substance: METOCLOPRAMIDE HYDROCHLORIDE
     Indication: NAUSEA
     Route: 042
     Dates: start: 20191207, end: 20191208
  26. LIPITOR [Concomitant]
     Active Substance: ATORVASTATIN CALCIUM
  27. CLEVIDIPINE [Concomitant]
     Active Substance: CLEVIDIPINE
  28. ACETAMINOPHEN. [Concomitant]
     Active Substance: ACETAMINOPHEN
     Indication: TROPONIN INCREASED
     Route: 048
     Dates: start: 20191201, end: 20191203
  29. ATORVASTATIN [Concomitant]
     Active Substance: ATORVASTATIN
     Indication: NEOPLASM MALIGNANT
     Route: 048
     Dates: start: 20191201
  30. DOCUSATE SODIUM. [Concomitant]
     Active Substance: DOCUSATE SODIUM
     Route: 048
     Dates: start: 20191201, end: 20191220
  31. PEPCID [Concomitant]
     Active Substance: FAMOTIDINE
     Route: 048
     Dates: start: 20190131
  32. CALCIUM GLUCONATE. [Concomitant]
     Active Substance: CALCIUM GLUCONATE
     Route: 042
     Dates: start: 20191218, end: 20191218
  33. ONDANSETRON [Concomitant]
     Active Substance: ONDANSETRON
  34. ASPIRIN [ACETYLSALICYLIC ACID] [Concomitant]
     Active Substance: ASPIRIN
     Indication: CEREBROVASCULAR ACCIDENT
     Route: 048
     Dates: start: 20191203, end: 20191203
  35. MELATONIN [Concomitant]
     Active Substance: MELATONIN
     Indication: INSOMNIA
     Route: 048
     Dates: start: 20191201, end: 20191205
  36. PEPCID [Concomitant]
     Active Substance: FAMOTIDINE
     Route: 042
     Dates: start: 20191207, end: 20191208
  37. PREVNAR 13 [Concomitant]
     Active Substance: PNEUMOCOCCAL 13-VALENT CONJUGATE VACCINE
     Indication: IMMUNISATION
     Route: 030
     Dates: start: 20191205, end: 20191205
  38. FENTANYL. [Concomitant]
     Active Substance: FENTANYL
     Route: 048
     Dates: start: 20191201
  39. ASPIRIN [ACETYLSALICYLIC ACID] [Concomitant]
     Active Substance: ASPIRIN
     Route: 048
     Dates: start: 20191204, end: 20191210
  40. FENTANYL. [Concomitant]
     Active Substance: FENTANYL
     Indication: SEDATIVE THERAPY
     Dosage: 25.00 OTHER
     Route: 042
     Dates: start: 20191130, end: 20191130
  41. PERIOGARD [Concomitant]
     Active Substance: CHLORHEXIDINE GLUCONATE
     Indication: DENTAL DISORDER PROPHYLAXIS
     Route: 048
     Dates: start: 20191219, end: 20191220
  42. REGLAN [Concomitant]
     Active Substance: METOCLOPRAMIDE HYDROCHLORIDE
     Indication: VOMITING
  43. RESTORIL [Concomitant]
     Active Substance: TEMAZEPAM
     Route: 048
     Dates: start: 20190717, end: 20191207
  44. TEMAZEPAM. [Concomitant]
     Active Substance: TEMAZEPAM
  45. PERIDEX [CHLORHEXIDINE GLUCONATE] [Concomitant]
  46. ACETAMINOPHEN. [Concomitant]
     Active Substance: ACETAMINOPHEN
     Indication: PAIN
     Route: 042
     Dates: start: 20191201, end: 20191203
  47. TYLENOL [Concomitant]
     Active Substance: ACETAMINOPHEN
     Indication: PAIN
     Route: 048
     Dates: start: 20191207, end: 20191220
  48. NORCO [Concomitant]
     Active Substance: ACETAMINOPHEN\HYDROCODONE BITARTRATE
     Indication: PAIN
     Route: 048
     Dates: start: 20191114

REACTIONS (6)
  - Anaemia [Recovering/Resolving]
  - Asthenia [Recovered/Resolved]
  - Seizure [Recovered/Resolved]
  - Pulmonary embolism [Not Recovered/Not Resolved]
  - Deep vein thrombosis [Not Recovered/Not Resolved]
  - Speech disorder [Recovered/Resolved]

NARRATIVE: CASE EVENT DATE: 20191201
